FAERS Safety Report 19377517 (Version 2)
Quarter: 2021Q2

REPORT INFORMATION
  Report Type: Report from Study
  Country: US (occurrence: CA)
  Receive Date: 20210604
  Receipt Date: 20210616
  Transmission Date: 20210717
  Serious: Yes (Hospitalization)
  Sender: FDA-Public Use
  Company Number: US-PFIZER INC-2021610233

PATIENT
  Age: 33 Year
  Sex: Male
  Weight: 79 kg

DRUGS (8)
  1. CYCLOPHOSPHAMIDE. [Suspect]
     Active Substance: CYCLOPHOSPHAMIDE
     Dosage: UNK TOTAL DOSE ADMINISTERED THIS COURSE (DOSE): 2060 MG
  2. METHOTREXATE SODIUM. [Suspect]
     Active Substance: METHOTREXATE SODIUM
     Dosage: UNK TOTAL DOSE ADMINISTERED THIS COURSE (DOSE): 45 MG
  3. DEXAMETHASONE. [Suspect]
     Active Substance: DEXAMETHASONE
     Dosage: UNK TOTAL DOSE ADMINISTERED THIS COURSE (DOSE): 280 MG
  4. THIOGUANINE [Suspect]
     Active Substance: THIOGUANINE
     Dosage: UNK TOTAL DOSE ADMINISTERED THIS COURSE (DOSE): 1560 MG
  5. CYTARABINE. [Suspect]
     Active Substance: CYTARABINE
     Dosage: UNK TOTAL DOSE ADMINISTERED THIS COURSE (DOSE): 1200 MG
  6. VINCRISTINE SULFATE. [Suspect]
     Active Substance: VINCRISTINE SULFATE
     Dosage: UNK TOTAL DOSE ADMINISTERED THIS COURSE (DOSE): 6 MG
  7. ONCASPAR [Suspect]
     Active Substance: PEGASPARGASE
     Dosage: UNK TOTAL DOSE ADMINISTERED THIS COURSE (DOSE): 3750 MG
  8. DOXORUBICIN HCL [Suspect]
     Active Substance: DOXORUBICIN HYDROCHLORIDE
     Dosage: UNK TOTAL DOSE ADMINISTERED THIS COURSE (DOSE): 156 MG

REACTIONS (1)
  - Febrile neutropenia [Not Recovered/Not Resolved]

NARRATIVE: CASE EVENT DATE: 20210508
